FAERS Safety Report 7624748-0 (Version None)
Quarter: 2011Q3

REPORT INFORMATION
  Report Type: 
  Country: None (occurrence: None)
  Receive Date: 20110720
  Receipt Date: 20080821
  Transmission Date: 20111222
  Serious: Yes (Death, Disabling)
  Sender: FDA-Public Use
  Company Number: US-BAYER-200818331NA

PATIENT
  Sex: Male
  Weight: 75 kg

DRUGS (18)
  1. OMNISCAN [Suspect]
     Indication: ANGIOGRAM
     Dosage: 40 ML, ONCE
     Dates: start: 20021107, end: 20021107
  2. EPOGEN [Concomitant]
  3. MAGNEVIST [Suspect]
     Dosage: 40 ML, ONCE
     Dates: start: 20020720, end: 20020720
  4. MAGNEVIST [Suspect]
     Dosage: UNK, ONCE
     Dates: start: 20030805, end: 20030805
  5. PROHANCE [Suspect]
  6. RENAGEL [Concomitant]
  7. ALLOPURINOL [Concomitant]
  8. PLAVIX [Concomitant]
  9. NEORAL [Concomitant]
  10. LOVASTATIN [Concomitant]
  11. MAGNEVIST [Suspect]
     Indication: ANGIOGRAM
     Dosage: UNK UNK, ONCE
     Dates: start: 19971222, end: 19971222
  12. OPTIMARK [Suspect]
  13. MULTIHANCE [Suspect]
  14. METOPROLOL TARTRATE [Concomitant]
  15. LEVOTHYROXINE SODIUM [Concomitant]
  16. PROCRIT [Concomitant]
  17. LIPITOR [Concomitant]
  18. ARANESP [Concomitant]

REACTIONS (25)
  - MOBILITY DECREASED [None]
  - QUALITY OF LIFE DECREASED [None]
  - JOINT CONTRACTURE [None]
  - WOUND [None]
  - INFECTION [None]
  - NEPHROGENIC SYSTEMIC FIBROSIS [None]
  - PAIN [None]
  - ANXIETY [None]
  - ULCER [None]
  - WHEELCHAIR USER [None]
  - DEPRESSION [None]
  - SUICIDAL IDEATION [None]
  - GENERAL PHYSICAL HEALTH DETERIORATION [None]
  - EMOTIONAL DISTRESS [None]
  - LIGAMENT DISORDER [None]
  - OESOPHAGEAL DISCOMFORT [None]
  - ACTIVITIES OF DAILY LIVING IMPAIRED [None]
  - FIBROSIS [None]
  - INJURY [None]
  - SCAR [None]
  - PERIPHERAL ISCHAEMIA [None]
  - PAIN IN EXTREMITY [None]
  - SKIN INDURATION [None]
  - SKIN HYPERTROPHY [None]
  - MOTOR DYSFUNCTION [None]
